FAERS Safety Report 10521846 (Version 2)
Quarter: 2014Q4

REPORT INFORMATION
  Report Type: Spontaneous
  Country: US (occurrence: None)
  Receive Date: 20141014
  Receipt Date: 20141027
  Transmission Date: 20150528
  Serious: Yes (Hospitalization)
  Sender: FDA-Public Use
  Company Number: QSC-2014-0687

PATIENT
  Age: 75 Year
  Sex: Female

DRUGS (13)
  1. CALCITRIOL. [Concomitant]
     Active Substance: CALCITRIOL
  2. ENALAPRIL [Concomitant]
     Active Substance: ENALAPRIL
  3. H.P. ACTHAR [Suspect]
     Active Substance: CORTICOTROPIN
     Indication: NEPHROTIC SYNDROME
     Dosage: 80 UNITS, BIW, SUBCUTANEOUS
     Route: 058
     Dates: start: 20140804, end: 20140922
  4. MAGNESIUM OXIDE. [Concomitant]
     Active Substance: MAGNESIUM OXIDE
  5. SENSIPAR (CINACALCET HYDROCHLORIDE) [Concomitant]
  6. LOPRESSOR [Concomitant]
     Active Substance: METOPROLOL TARTRATE
  7. MYFORTIC (MYCOPHENOLATE SODIUM) [Concomitant]
  8. DAPSON (DAPSONE) [Concomitant]
  9. KLONOPIN [Concomitant]
     Active Substance: CLONAZEPAM
  10. PROGRAF [Concomitant]
     Active Substance: TACROLIMUS\TACROLIMUS ANHYDROUS
  11. BUMEX (BUMETANIDE) [Concomitant]
  12. PREDNISONE. [Concomitant]
     Active Substance: PREDNISONE
  13. COZAAR (LOSARTAN POTASSIUM) [Concomitant]

REACTIONS (9)
  - Proteinuria [None]
  - Weight increased [None]
  - Therapy cessation [None]
  - Blood pressure increased [None]
  - Pulmonary congestion [None]
  - Fluid overload [None]
  - Cardiac failure [None]
  - Renal failure [None]
  - Dialysis [None]

NARRATIVE: CASE EVENT DATE: 20140829
